FAERS Safety Report 14536281 (Version 1)
Quarter: 2018Q1

REPORT INFORMATION
  Report Type: Spontaneous
  Country: US (occurrence: US)
  Receive Date: 20180215
  Receipt Date: 20180215
  Transmission Date: 20180509
  Serious: No
  Sender: FDA-Public Use
  Company Number: US-PFIZER INC-2018067182

PATIENT
  Age: 64 Year
  Sex: Female
  Weight: 53.7 kg

DRUGS (1)
  1. PREMPRO [Suspect]
     Active Substance: ESTROGENS, CONJUGATED\MEDROXYPROGESTERONE ACETATE
     Dosage: 1.5 MG, 1X/DAY
     Route: 048

REACTIONS (6)
  - Anger [Unknown]
  - Impaired driving ability [Unknown]
  - Thirst [Unknown]
  - Thinking abnormal [Unknown]
  - Feeling hot [Unknown]
  - Drug dose omission [Not Recovered/Not Resolved]

NARRATIVE: CASE EVENT DATE: 201801
